FAERS Safety Report 12122483 (Version 1)
Quarter: 2016Q1

REPORT INFORMATION
  Report Type: Spontaneous
  Country: FR (occurrence: FR)
  Receive Date: 20160226
  Receipt Date: 20160226
  Transmission Date: 20160526
  Serious: Yes (Hospitalization, Other)
  Sender: FDA-Public Use
  Company Number: FR-ASTRAZENECA-2016SE19845

PATIENT
  Age: 22919 Day
  Sex: Female

DRUGS (4)
  1. SERESTA [Suspect]
     Active Substance: OXAZEPAM
     Indication: PROPHYLAXIS AGAINST ALCOHOLIC WITHDRAWAL SYNDROME
     Route: 065
  2. XEROQUEL [Suspect]
     Active Substance: QUETIAPINE FUMARATE
     Indication: DEPRESSION
     Route: 048
     Dates: start: 20151217
  3. XEROQUEL [Suspect]
     Active Substance: QUETIAPINE FUMARATE
     Indication: DEPRESSION
     Route: 048
  4. SERESTA [Suspect]
     Active Substance: OXAZEPAM
     Indication: PROPHYLAXIS AGAINST ALCOHOLIC WITHDRAWAL SYNDROME
     Route: 065
     Dates: start: 20151217

REACTIONS (7)
  - Intentional overdose [Recovered/Resolved]
  - Miosis [Recovered/Resolved]
  - Coma [Recovered/Resolved]
  - Hypotonia [Recovered/Resolved]
  - Extrapyramidal disorder [Recovered/Resolved]
  - Pneumonia aspiration [Unknown]
  - Dysarthria [Recovered/Resolved]

NARRATIVE: CASE EVENT DATE: 20151217
